FAERS Safety Report 9660117 (Version 3)
Quarter: 2013Q4

REPORT INFORMATION
  Report Type: Spontaneous
  Country: IT (occurrence: IT)
  Receive Date: 20131031
  Receipt Date: 20131212
  Transmission Date: 20140711
  Serious: Yes (Life-Threatening, Hospitalization)
  Sender: FDA-Public Use
  Company Number: IT-UCBSA-101755

PATIENT
  Age: 50 Year
  Sex: Male

DRUGS (4)
  1. KEPPRA [Suspect]
     Indication: EPILEPSY
     Dosage: 3000 MG ALL AT ONCE
     Route: 048
     Dates: start: 20130610, end: 20130610
  2. KEPPRA [Suspect]
     Indication: EPILEPSY
     Route: 048
  3. XANAX [Suspect]
     Indication: ANXIETY DISORDER
     Dosage: 1 MG
     Route: 048
  4. NORVASC [Suspect]
     Indication: HYPERTENSION
     Dosage: 10 MG
     Route: 048

REACTIONS (9)
  - Overdose [Unknown]
  - Drug abuse [Recovered/Resolved]
  - Depressed level of consciousness [Recovered/Resolved]
  - Slow response to stimuli [Recovered/Resolved]
  - Slow speech [Recovered/Resolved]
  - Cyanosis [Recovered/Resolved]
  - Hyperhidrosis [Recovered/Resolved]
  - Disturbance in attention [Recovered/Resolved]
  - Cough [Recovered/Resolved]
